FAERS Safety Report 10125275 (Version 1)
Quarter: 2014Q2

REPORT INFORMATION
  Report Type: Spontaneous
  Country: KR (occurrence: KR)
  Receive Date: 20140425
  Receipt Date: 20140425
  Transmission Date: 20141212
  Serious: Yes (Hospitalization)
  Sender: FDA-Public Use
  Company Number: KR-JNJFOC-20140414204

PATIENT
  Age: 41 Year
  Sex: Female
  Weight: 64 kg

DRUGS (8)
  1. CAELYX (DOXORUBICIN HYDROCHLORIDE) [Suspect]
     Indication: OVARIAN CANCER
     Route: 042
     Dates: start: 20130923
  2. CAELYX (DOXORUBICIN HYDROCHLORIDE) [Suspect]
     Indication: OVARIAN CANCER
     Route: 042
     Dates: start: 20130722, end: 20130819
  3. EC145 [Suspect]
     Indication: OVARIAN CANCER
     Dosage: DAY 1, 3, 5, 15, 17, 19
     Route: 042
     Dates: start: 20130722
  4. EC20 [Suspect]
     Indication: SINGLE PHOTON EMISSION COMPUTERISED TOMOGRAM
     Route: 042
     Dates: start: 20130709, end: 20130709
  5. FOLIC ACID [Suspect]
     Indication: SINGLE PHOTON EMISSION COMPUTERISED TOMOGRAM
     Route: 042
     Dates: start: 20130709, end: 20130709
  6. FAMOTIDINE [Concomitant]
     Indication: PROPHYLACTIC CHEMOTHERAPY
     Route: 042
  7. CHLORPHENIRAMINE MALEATE [Concomitant]
     Indication: PROPHYLACTIC CHEMOTHERAPY
     Route: 042
     Dates: start: 20131209, end: 20131209
  8. PALONOSETRON [Concomitant]
     Indication: PROPHYLACTIC CHEMOTHERAPY
     Route: 042
     Dates: start: 20131209, end: 20131209

REACTIONS (2)
  - Infectious colitis [Recovered/Resolved]
  - Stomatitis [Unknown]
